FAERS Safety Report 23603278 (Version 5)
Quarter: 2024Q4

REPORT INFORMATION
  Report Type: Spontaneous
  Country: US (occurrence: US)
  Receive Date: 20240307
  Receipt Date: 20241106
  Transmission Date: 20250115
  Serious: No
  Sender: AMGEN
  Company Number: US-AMGEN-USASP2024046711

PATIENT
  Age: 30 Year
  Sex: Female

DRUGS (6)
  1. OTEZLA [Suspect]
     Active Substance: APREMILAST
     Indication: Psoriasis
     Dosage: 30 MILLIGRAM, BID
     Route: 048
     Dates: start: 202403
  2. B 12 [Concomitant]
     Dosage: 1000 MICROGRAM
  3. BOOSTRIX [Concomitant]
     Active Substance: TETANUS TOXOID, REDUCED DIPHTHERIA TOXOID AND ACELLULAR PERTUSSIS VACCINE, ADSORBED ANTIGENS
     Dosage: UNK
  4. MICROGESTIN [Concomitant]
     Active Substance: ETHINYL ESTRADIOL\NORETHINDRONE ACETATE
     Dosage: 1/20
  5. VITAMIN A [Concomitant]
     Active Substance: VITAMIN A
     Dosage: 8000 UNIT
  6. VITAMIN D3 [Concomitant]
     Active Substance: CHOLECALCIFEROL
     Dosage: 400 UNIT

REACTIONS (8)
  - Nausea [Unknown]
  - Vomiting [Unknown]
  - Rash [Unknown]
  - Fatigue [Unknown]
  - Diarrhoea [Unknown]
  - Adverse drug reaction [Not Recovered/Not Resolved]
  - Product dose omission issue [Unknown]
  - Therapy non-responder [Unknown]

NARRATIVE: CASE EVENT DATE: 20240101
